FAERS Safety Report 5689944-0 (Version None)
Quarter: 2008Q1

REPORT INFORMATION
  Report Type: 
  Country: None (occurrence: None)
  Receive Date: 20080331
  Receipt Date: 20080331
  Transmission Date: 20080703
  Serious: Yes (Hospitalization)
  Sender: FDA-Public Use
  Company Number: None

PATIENT
  Sex: Male
  Weight: 116 kg

DRUGS (2)
  1. CYTARABINE [Suspect]
     Dosage: 12000 MG
  2. LOVENOX [Concomitant]

REACTIONS (23)
  - ANAEMIA [None]
  - ASTHENIA [None]
  - BRAIN OEDEMA [None]
  - CEREBRAL HAEMORRHAGE [None]
  - CHEST PAIN [None]
  - DYSPNOEA [None]
  - EYELID PTOSIS [None]
  - GRAND MAL CONVULSION [None]
  - GRIP STRENGTH DECREASED [None]
  - HAEMOPTYSIS [None]
  - HAEMORRHAGE [None]
  - HAEMOTHORAX [None]
  - HEADACHE [None]
  - HYPOAESTHESIA [None]
  - JUGULAR VEIN THROMBOSIS [None]
  - METASTASES TO CENTRAL NERVOUS SYSTEM [None]
  - MUSCLE CONTRACTURE [None]
  - NEOPLASM PROGRESSION [None]
  - NEUROLOGICAL SYMPTOM [None]
  - PAIN [None]
  - PAIN IN EXTREMITY [None]
  - SOMNOLENCE [None]
  - THROMBOCYTOPENIA [None]
